FAERS Safety Report 12775253 (Version 2)
Quarter: 2016Q3

REPORT INFORMATION
  Report Type: Spontaneous
  Country: RO (occurrence: RO)
  Receive Date: 20160923
  Receipt Date: 20160928
  Transmission Date: 20161109
  Serious: Yes (Life-Threatening, Hospitalization, Other)
  Sender: FDA-Public Use
  Company Number: RO-ABBVIE-16P-135-1732627-00

PATIENT
  Age: 62 Year
  Sex: Female
  Weight: 54 kg

DRUGS (11)
  1. MODERIBA [Suspect]
     Active Substance: RIBAVIRIN
     Indication: HEPATIC CIRRHOSIS
  2. DEPACHINE [Concomitant]
     Indication: MAJOR DEPRESSION
  3. EXVIERA [Suspect]
     Active Substance: DASABUVIR
     Indication: HEPATITIS C
     Route: 048
     Dates: start: 20160719, end: 20160819
  4. EXVIERA [Suspect]
     Active Substance: DASABUVIR
     Indication: HEPATIC CIRRHOSIS
  5. DORMICUM [Concomitant]
     Active Substance: MIDAZOLAM\MIDAZOLAM HYDROCHLORIDE
     Indication: MAJOR DEPRESSION
  6. VIEKIRAX [Suspect]
     Active Substance: OMBITASVIR\PARITAPREVIR\RITONAVIR
     Indication: HEPATIC CIRRHOSIS
  7. ANXIAR [Concomitant]
     Indication: MAJOR DEPRESSION
  8. SEROQUEL [Concomitant]
     Active Substance: QUETIAPINE FUMARATE
     Indication: MAJOR DEPRESSION
  9. VIEKIRAX [Suspect]
     Active Substance: OMBITASVIR\PARITAPREVIR\RITONAVIR
     Indication: HEPATITIS C
     Dosage: 12.5 MG/75 MG/50 MG; TWO IN ONE DAY
     Route: 048
     Dates: start: 20160719, end: 20160819
  10. SERLIFT [Concomitant]
     Active Substance: SERTRALINE HYDROCHLORIDE
     Indication: MAJOR DEPRESSION
  11. MODERIBA [Suspect]
     Active Substance: RIBAVIRIN
     Indication: HEPATITIS C
     Route: 048
     Dates: start: 20160719, end: 20160819

REACTIONS (21)
  - Dizziness [Unknown]
  - Hypophagia [Unknown]
  - Bradycardia [Unknown]
  - Weight decreased [Unknown]
  - Depression [Recovering/Resolving]
  - Hepatocellular injury [Unknown]
  - Tricuspid valve incompetence [Unknown]
  - Electrolyte imbalance [Unknown]
  - Quadriparesis [Unknown]
  - Coma [Recovered/Resolved]
  - Pneumonia escherichia [Unknown]
  - Hypokinesia [Unknown]
  - Photophobia [Unknown]
  - Polyneuropathy [Recovered/Resolved]
  - Asthenia [Unknown]
  - Vomiting [Unknown]
  - Meningeal disorder [Unknown]
  - Urinary tract infection [Unknown]
  - Radiculopathy [Unknown]
  - Mitral valve incompetence [Unknown]
  - Headache [Unknown]

NARRATIVE: CASE EVENT DATE: 20160810
